FAERS Safety Report 21847305 (Version 1)
Quarter: 2023Q1

REPORT INFORMATION
  Report Type: Spontaneous
  Country: GB (occurrence: GB)
  Receive Date: 20230111
  Receipt Date: 20230111
  Transmission Date: 20230418
  Serious: Yes (Other)
  Sender: FDA-Public Use
  Company Number: GB-ABBVIE-22K-167-4489582-00

PATIENT
  Age: 71 Year
  Sex: Female
  Weight: 57 kg

DRUGS (23)
  1. SOLIFENACIN [Suspect]
     Active Substance: SOLIFENACIN
     Indication: Hypertonic bladder
     Dosage: 5 MILLIGRAM
     Route: 065
  2. CARBIDOPA\LEVODOPA [Suspect]
     Active Substance: CARBIDOPA\LEVODOPA
     Indication: Parkinson^s disease
     Dosage: MD: 9.5MLS, CR: 3.3MLS, ED: 2.2MLS, 20MGS/5MGSFIRST ADMINISTRATION DATE: 2022; ;
     Route: 050
  3. CARBIDOPA\LEVODOPA [Suspect]
     Active Substance: CARBIDOPA\LEVODOPA
     Dosage: 3.7 CONTINUOUS RATE, MORNING DOSE 9.5, EXTRA DOSE 2.2, PUMP RUNS FROM 7 AM TO 10 PM, 20MGS/5MGS; ;
     Route: 050
  4. CARBIDOPA\LEVODOPA [Suspect]
     Active Substance: CARBIDOPA\LEVODOPA
     Dosage: MD: 9.5MLS, CR: 3.3MLS, ED: 2.2MLS, 20MGS/5MGSFIRST ADMINISTRATION DATE: 2022; ;
     Route: 050
  5. CITALOPRAM [Concomitant]
     Active Substance: CITALOPRAM HYDROBROMIDE
     Indication: Product used for unknown indication
     Dosage: 40 MILLIGRAM
     Route: 065
  6. SENNA [Concomitant]
     Active Substance: SENNA LEAF\SENNOSIDES\SENNOSIDES A AND B
     Indication: Product used for unknown indication
     Dosage: 1-2 TABLETS AT NIGHT
     Route: 065
  7. SENNA [Concomitant]
     Active Substance: SENNA LEAF\SENNOSIDES\SENNOSIDES A AND B
     Dosage: 1-2 TABLETS NIGHT; ;; ;
  8. MIRABEGRON [Concomitant]
     Active Substance: MIRABEGRON
     Indication: Product used for unknown indication
     Dosage: 50 MILLIGRAM, ONCE A DAY AT 9AM
     Route: 065
  9. CLONAZEPAM [Concomitant]
     Active Substance: CLONAZEPAM
     Indication: Product used for unknown indication
     Dosage: 0.25 MILLIGRAM, ONCE A DAY AT NIGHT;
     Route: 065
  10. CLONAZEPAM [Concomitant]
     Active Substance: CLONAZEPAM
     Dosage: 500 MICROGRAM (TAKES HALF A TABLET AT 22:00)
     Route: 065
  11. POLYETHYLENE GLYCOL 3350\POTASSIUM CHLORIDE\SODIUM BICARBONATE\SODIUM [Concomitant]
     Active Substance: POLYETHYLENE GLYCOL 3350\POTASSIUM CHLORIDE\SODIUM BICARBONATE\SODIUM CHLORIDE
     Indication: Product used for unknown indication
     Dosage: 1 DOSAGE FORM, DAILY
     Route: 065
  12. POLYETHYLENE GLYCOL 3350\POTASSIUM CHLORIDE\SODIUM BICARBONATE\SODIUM [Concomitant]
     Active Substance: POLYETHYLENE GLYCOL 3350\POTASSIUM CHLORIDE\SODIUM BICARBONATE\SODIUM CHLORIDE
     Dosage: 2 DOSAGE FORM, DAILY
     Route: 065
  13. SINEMET [Concomitant]
     Active Substance: CARBIDOPA\LEVODOPA
     Indication: Product used for unknown indication
     Dosage: 1 DOSAGE FORM, 5 TIMES A DAY (25/100 MG AT 7 AM,10 AM,1 PM,4 PM,7PM)
     Route: 065
  14. SINEMET [Concomitant]
     Active Substance: CARBIDOPA\LEVODOPA
     Dosage: 1 DOSAGE FORM, ONCE A DAY OVERNIGHT
     Route: 065
  15. SINEMET [Concomitant]
     Active Substance: CARBIDOPA\LEVODOPA
     Dosage: 12.5/50MG
     Route: 065
  16. CARBIDOPA\LEVODOPA [Concomitant]
     Active Substance: CARBIDOPA\LEVODOPA
     Indication: Product used for unknown indication
     Dosage: 1 DOSAGE FORM (12.5/50 AS NEEDED OVERNIGHT)
     Route: 065
  17. CARBIDOPA\LEVODOPA [Concomitant]
     Active Substance: CARBIDOPA\LEVODOPA
     Dosage: 1 DOSAGE FORM (25/100 MG)
     Route: 065
  18. CARBIDOPA\LEVODOPA [Concomitant]
     Active Substance: CARBIDOPA\LEVODOPA
     Dosage: 1 DOSAGE FORM (EVERY NIGHT AT 10 PM))
     Route: 065
  19. CARBIDOPA\LEVODOPA [Concomitant]
     Active Substance: CARBIDOPA\LEVODOPA
     Dosage: 5 TIMES DAILY(7 AM,10 AM,1 PM,4 PM,7PM)
     Route: 065
  20. VITAMIN D3 [Concomitant]
     Active Substance: CHOLECALCIFEROL
     Indication: Product used for unknown indication
     Dosage: UNK
     Route: 065
  21. SINEMET CR [Concomitant]
     Active Substance: CARBIDOPA\LEVODOPA
     Indication: Product used for unknown indication
     Dosage: HALF SINEMET CR
     Route: 065
  22. SINEMET CR [Concomitant]
     Active Substance: CARBIDOPA\LEVODOPA
     Dosage: 1 DOSAGE FORM  EVERY NIGHT AT 10 PM
     Route: 065
  23. OMEPRAZOLE [Concomitant]
     Active Substance: OMEPRAZOLE
     Indication: Product used for unknown indication
     Dosage: 20 MILLIGRAM
     Route: 065

REACTIONS (43)
  - Chest discomfort [Not Recovered/Not Resolved]
  - Contusion [Not Recovered/Not Resolved]
  - Abdominal pain [Not Recovered/Not Resolved]
  - Dyskinesia [Not Recovered/Not Resolved]
  - Adverse drug reaction [Unknown]
  - Feeling hot [Unknown]
  - Pollakiuria [Unknown]
  - Dystonia [Unknown]
  - Micturition urgency [Unknown]
  - Weight decreased [Unknown]
  - Headache [Unknown]
  - Fatigue [Unknown]
  - Dry mouth [Unknown]
  - Musculoskeletal disorder [Unknown]
  - Restless legs syndrome [Unknown]
  - Hypertonic bladder [Unknown]
  - Euphoric mood [Unknown]
  - Fall [Unknown]
  - Muscle spasms [Unknown]
  - Mobility decreased [Unknown]
  - Hyperhidrosis [Unknown]
  - Dyspnoea [Unknown]
  - Freezing phenomenon [Unknown]
  - Anxiety [Unknown]
  - Bradykinesia [Unknown]
  - Somnolence [Unknown]
  - On and off phenomenon [Unknown]
  - Pain [Unknown]
  - Muscle twitching [Unknown]
  - Depressed mood [Unknown]
  - Feeling abnormal [Unknown]
  - Tearfulness [Unknown]
  - Initial insomnia [Recovered/Resolved]
  - Middle insomnia [Recovered/Resolved]
  - Pruritus [Unknown]
  - Asthenia [Unknown]
  - Head discomfort [Unknown]
  - Nocturia [Unknown]
  - Ear pruritus [Unknown]
  - Tinnitus [Unknown]
  - Malaise [Unknown]
  - Muscle rigidity [Unknown]
  - Gait disturbance [Unknown]

NARRATIVE: CASE EVENT DATE: 20220101
